FAERS Safety Report 7990883-0 (Version None)
Quarter: 2011Q4

REPORT INFORMATION
  Report Type: 
  Country: None (occurrence: None)
  Receive Date: 20111219
  Receipt Date: 20111124
  Transmission Date: 20120403
  Serious: Yes (Hospitalization, Other)
  Sender: FDA-Public Use
  Company Number: KR-ROCHE-1016354

PATIENT
  Age: 5 Year
  Sex: Male

DRUGS (2)
  1. GANCICLOVIR [Suspect]
  2. GANCICLOVIR [Suspect]
     Indication: CYTOMEGALOVIRUS INFECTION

REACTIONS (1)
  - THROMBOTIC MICROANGIOPATHY [None]
